FAERS Safety Report 4294449-8 (Version None)
Quarter: 2004Q1

REPORT INFORMATION
  Report Type: 
  Country: None (occurrence: None)
  Receive Date: 20040211
  Receipt Date: 20040206
  Transmission Date: 20041129
  Serious: Yes (Death)
  Sender: FDA-Public Use
  Company Number: 2003190197US

PATIENT
  Age: 58 Year
  Sex: Male

DRUGS (4)
  1. CAMPTOSAR [Suspect]
     Indication: COLON CANCER
     Dosage: IV
     Route: 042
     Dates: start: 20030506, end: 20030831
  2. THALIDOMIDE (THALIDOMIDE) [Suspect]
     Indication: METASTASES TO LIVER
     Dosage: SEE IMAGE
     Route: 048
     Dates: start: 20020805, end: 20030407
  3. THALIDOMIDE (THALIDOMIDE) [Suspect]
     Indication: METASTASES TO LIVER
     Dosage: SEE IMAGE
     Route: 048
     Dates: start: 20030506, end: 20030831
  4. THALIDOMIDE (THALIDOMIDE) [Suspect]

REACTIONS (1)
  - MYOCARDIAL INFARCTION [None]
